FAERS Safety Report 5114712-8 (Version None)
Quarter: 2006Q3

REPORT INFORMATION
  Report Type: 
  Country: None (occurrence: None)
  Receive Date: 20060922
  Receipt Date: 20060922
  Transmission Date: 20061208
  Serious: Yes (Hospitalization)
  Sender: FDA-Public Use
  Company Number: None

PATIENT
  Age: 61 Year
  Sex: Male
  Weight: 116.5744 kg

DRUGS (13)
  1. ZOLEDRONIC ACID    4 MG [Suspect]
     Indication: PROSTATE CANCER
     Dosage: 4MG   Q4 WKS  IV
     Route: 042
     Dates: start: 20051014, end: 20060617
  2. DARBOPOETIN ALFA [Concomitant]
  3. DESIPRAMINE HCL [Concomitant]
  4. DOCUSATE NA [Concomitant]
  5. FELODIPINE [Concomitant]
  6. FERROUS SULFATE TAB [Concomitant]
  7. FUROSEMIDE [Concomitant]
  8. HALOPERIDOL [Concomitant]
  9. M.V.I. [Concomitant]
  10. OMEPRAZOLE [Concomitant]
  11. DOCETAXEL [Concomitant]
  12. OXYBUTYNIN [Concomitant]
  13. TEMAZEPAM [Concomitant]

REACTIONS (10)
  - ASTHENIA [None]
  - BLOOD CALCIUM DECREASED [None]
  - CREATINE URINE INCREASED [None]
  - FATIGUE [None]
  - HAEMATURIA [None]
  - HAEMOGLOBIN DECREASED [None]
  - OBSTRUCTIVE UROPATHY [None]
  - OEDEMA [None]
  - RENAL IMPAIRMENT [None]
  - RENAL TUBULAR NECROSIS [None]
